FAERS Safety Report 4640942-5 (Version None)
Quarter: 2005Q2

REPORT INFORMATION
  Report Type: 
  Country: None (occurrence: None)
  Receive Date: 20050420
  Receipt Date: 20050412
  Transmission Date: 20051028
  Serious: Yes (Other)
  Sender: FDA-Public Use
  Company Number: AU-MERCK-0504AUS00085

PATIENT
  Age: 63 Year
  Sex: Male

DRUGS (1)
  1. VIOXX [Suspect]
     Indication: ARTHROPATHY
     Route: 048
     Dates: start: 20020501, end: 20040101

REACTIONS (7)
  - CARDIAC DISORDER [None]
  - COUGH [None]
  - ERECTILE DYSFUNCTION [None]
  - GASTRIC DISORDER [None]
  - MYOCARDIAL INFARCTION [None]
  - RASH [None]
  - SEASONAL ALLERGY [None]
